FAERS Safety Report 14352501 (Version 1)
Quarter: 2018Q1

REPORT INFORMATION
  Report Type: Report from Study
  Country: US (occurrence: US)
  Receive Date: 20180104
  Receipt Date: 20180104
  Transmission Date: 20180509
  Serious: Yes (Death, Hospitalization)
  Sender: FDA-Public Use
  Company Number: US-ACTELION-A-US2017-157154

PATIENT
  Age: 54 Year
  Sex: Female

DRUGS (5)
  1. TRACLEER [Suspect]
     Active Substance: BOSENTAN
     Indication: PULMONARY ARTERIAL HYPERTENSION
     Dosage: 125 MG, BID
     Route: 048
     Dates: start: 201702, end: 20171202
  2. DIGOXIN. [Concomitant]
     Active Substance: DIGOXIN
  3. SILDENAFIL. [Concomitant]
     Active Substance: SILDENAFIL
  4. EPLERENONE. [Concomitant]
     Active Substance: EPLERENONE
  5. TORSEMIDE. [Concomitant]
     Active Substance: TORSEMIDE

REACTIONS (4)
  - Fluid retention [Recovering/Resolving]
  - Device malfunction [Recovering/Resolving]
  - Death [Fatal]
  - Cardiac failure [Recovering/Resolving]

NARRATIVE: CASE EVENT DATE: 20171202
